FAERS Safety Report 18502465 (Version 1)
Quarter: 2020Q4

REPORT INFORMATION
  Report Type: Spontaneous
  Country: US (occurrence: US)
  Receive Date: 20201113
  Receipt Date: 20201113
  Transmission Date: 20210114
  Serious: Yes (Other)
  Sender: FDA-Public Use
  Company Number: NVSC2020US299815

PATIENT
  Sex: Male
  Weight: 57 kg

DRUGS (1)
  1. KYMRIAH [Suspect]
     Active Substance: TISAGENLECLEUCEL
     Indication: ACUTE LYMPHOCYTIC LEUKAEMIA
     Dosage: 20 ML, ONCE/SINGLE
     Route: 042
     Dates: start: 20190304, end: 20190304

REACTIONS (2)
  - Acute lymphocytic leukaemia recurrent [Unknown]
  - B-cell aplasia [Unknown]
